FAERS Safety Report 6184393-3 (Version None)
Quarter: 2009Q2

REPORT INFORMATION
  Report Type: 
  Country: None (occurrence: None)
  Receive Date: 20090508
  Receipt Date: 20090428
  Transmission Date: 20091009
  Serious: Yes (Other)
  Sender: FDA-Public Use
  Company Number: B0562654A

PATIENT
  Age: 8 Year
  Sex: Female
  Weight: 30 kg

DRUGS (2)
  1. RELENZA [Suspect]
     Indication: INFLUENZA
     Dosage: 10MG TWICE PER DAY
     Route: 055
     Dates: start: 20090206, end: 20090207
  2. RELENZA [Suspect]
     Dosage: 5MG TWICE PER DAY
     Route: 055
     Dates: start: 20090207, end: 20090207

REACTIONS (2)
  - DELIRIUM [None]
  - RESTLESSNESS [None]
